FAERS Safety Report 9434299 (Version 46)
Quarter: 2017Q1

REPORT INFORMATION
  Report Type: Report from Study
  Country: CA (occurrence: CA)
  Receive Date: 20130801
  Receipt Date: 20170110
  Transmission Date: 20170429
  Serious: Yes (Hospitalization, Other)
  Sender: FDA-Public Use
  Company Number: CA-ROCHE-1171143

PATIENT
  Age: 53 Year
  Sex: Female
  Weight: 91 kg

DRUGS (10)
  1. ACTEMRA [Suspect]
     Active Substance: TOCILIZUMAB
     Indication: RHEUMATOID ARTHRITIS
     Route: 042
     Dates: start: 20121123
  2. ACTEMRA [Suspect]
     Active Substance: TOCILIZUMAB
     Route: 042
     Dates: start: 20140801
  3. FOLIC ACID. [Concomitant]
     Active Substance: FOLIC ACID
     Route: 065
  4. SUCRALFATE. [Concomitant]
     Active Substance: SUCRALFATE
  5. SERTRALINE [Concomitant]
     Active Substance: SERTRALINE HYDROCHLORIDE
     Route: 065
  6. TEMAZEPAM. [Concomitant]
     Active Substance: TEMAZEPAM
     Route: 065
  7. DILAUDID [Concomitant]
     Active Substance: HYDROMORPHONE HYDROCHLORIDE
     Route: 065
  8. MS CONTIN [Concomitant]
     Active Substance: MORPHINE SULFATE
     Route: 065
  9. ACTEMRA [Suspect]
     Active Substance: TOCILIZUMAB
     Route: 042
     Dates: start: 20160324
  10. PANTOLOC [Concomitant]
     Active Substance: PANTOPRAZOLE SODIUM
     Route: 065

REACTIONS (55)
  - Neck mass [Not Recovered/Not Resolved]
  - Onychomadesis [Unknown]
  - Medication error [Unknown]
  - Cystitis [Unknown]
  - Wound infection [Recovering/Resolving]
  - Pallor [Not Recovered/Not Resolved]
  - Urinary tract infection [Unknown]
  - Fall [Unknown]
  - Infusion related reaction [Unknown]
  - Infection [Unknown]
  - Gait disturbance [Unknown]
  - Ligament sprain [Not Recovered/Not Resolved]
  - Osteomyelitis [Unknown]
  - Facial paralysis [Not Recovered/Not Resolved]
  - Skin ulcer [Recovering/Resolving]
  - Blood pressure systolic increased [Unknown]
  - Dehydration [Unknown]
  - Diarrhoea [Recovered/Resolved]
  - Pruritus [Recovering/Resolving]
  - Ill-defined disorder [Unknown]
  - Disorientation [Unknown]
  - Incision site infection [Unknown]
  - Gastrooesophageal reflux disease [Not Recovered/Not Resolved]
  - Gastritis [Unknown]
  - Infection [Unknown]
  - Nail infection [Not Recovered/Not Resolved]
  - Gastric disorder [Not Recovered/Not Resolved]
  - Joint swelling [Recovered/Resolved]
  - Respiratory rate decreased [Unknown]
  - Candida infection [Recovering/Resolving]
  - Erythema [Recovering/Resolving]
  - Blood pressure systolic increased [Unknown]
  - Heart rate decreased [Unknown]
  - Thyroid function test abnormal [Unknown]
  - Weight increased [Not Recovered/Not Resolved]
  - Platelet count decreased [Not Recovered/Not Resolved]
  - Limb injury [Unknown]
  - Heart rate decreased [Unknown]
  - Urinary tract infection [Unknown]
  - Oropharyngeal pain [Not Recovered/Not Resolved]
  - Oxygen saturation decreased [Unknown]
  - Reflux gastritis [Unknown]
  - Fatigue [Not Recovered/Not Resolved]
  - Memory impairment [Not Recovered/Not Resolved]
  - Reflux gastritis [Not Recovered/Not Resolved]
  - Clostridium difficile infection [Not Recovered/Not Resolved]
  - Reflux gastritis [Not Recovered/Not Resolved]
  - Localised infection [Recovered/Resolved]
  - Hand deformity [Unknown]
  - Swelling face [Not Recovered/Not Resolved]
  - Weight decreased [Unknown]
  - Hypotension [Unknown]
  - Blood pressure decreased [Unknown]
  - Oropharyngeal pain [Unknown]
  - Chest pain [Recovered/Resolved]

NARRATIVE: CASE EVENT DATE: 20121219
